FAERS Safety Report 5757142-8 (Version None)
Quarter: 2008Q2

REPORT INFORMATION
  Report Type: 
  Country: None (occurrence: None)
  Receive Date: 20080529
  Receipt Date: 20080318
  Transmission Date: 20081010
  Serious: Yes (Disabling)
  Sender: FDA-Public Use
  Company Number: US023033

PATIENT
  Age: 58 Year
  Sex: Male
  Weight: 74.8435 kg

DRUGS (16)
  1. TRISENOX [Suspect]
     Indication: ACUTE PROMYELOCYTIC LEUKAEMIA
     Dosage: 12 MG FIVE DAYS A WEEK FOR FIVE WEEKS FOLLOWED BY A TWO WEEK REST PERIOD INTRAVENOUS DRIP
     Route: 041
     Dates: start: 20080121
  2. MEGESTROL ACETATE [Concomitant]
  3. OXYCODONE HCL [Concomitant]
  4. METOPROLOL [Concomitant]
  5. PHOSLO [Concomitant]
  6. FLUOXETINE HCL [Concomitant]
  7. ASPIRIN [Concomitant]
  8. METRONIDAZOLE HCL [Concomitant]
  9. MORPHINE [Concomitant]
  10. METOCLOPRAMIDE [Concomitant]
  11. FLUCONAZOLE [Concomitant]
  12. ACYCLOVIR SODIUM [Concomitant]
  13. LOPERAMIDE HCL [Concomitant]
  14. CALCIUM CARBONATE [Concomitant]
  15. PROCHLORPERAZINE [Concomitant]
  16. ONDANSETRON [Concomitant]

REACTIONS (5)
  - GAIT DISTURBANCE [None]
  - LIMB DISCOMFORT [None]
  - NEUROPATHY PERIPHERAL [None]
  - PAIN IN EXTREMITY [None]
  - PERIPHERAL COLDNESS [None]
